FAERS Safety Report 6312530-6 (Version None)
Quarter: 2009Q3

REPORT INFORMATION
  Report Type: 
  Country: None (occurrence: None)
  Receive Date: 20090817
  Receipt Date: 20090807
  Transmission Date: 20100115
  Serious: Yes (Other)
  Sender: FDA-Public Use
  Company Number: US-PFIZER INC-2009254730

PATIENT
  Sex: Male
  Weight: 61 kg

DRUGS (11)
  1. ATORVASTATIN CALCIUM [Suspect]
     Indication: MYOCARDIAL INFARCTION
     Dates: start: 20090419, end: 20090628
  2. ATORVASTATIN CALCIUM [Suspect]
     Indication: HIGH DENSITY LIPOPROTEIN DECREASED
  3. SIMVASTATIN [Suspect]
     Indication: MYOCARDIAL INFARCTION
     Dates: start: 20090629
  4. SIMVASTATIN [Suspect]
     Indication: LOW DENSITY LIPOPROTEIN DECREASED
  5. FUROSEMIDE [Suspect]
     Indication: FLUID RETENTION
     Dates: start: 20090419
  6. FUROSEMIDE [Suspect]
     Indication: OEDEMA PERIPHERAL
  7. COREG [Concomitant]
     Dosage: UNK
  8. LISINOPRIL [Concomitant]
     Dosage: UNK
  9. ASPIRIN [Concomitant]
     Dosage: UNK
  10. PROVIGIL [Concomitant]
     Dosage: UNK
  11. BETASERON [Concomitant]
     Dosage: UNK

REACTIONS (7)
  - ARTHRALGIA [None]
  - ECONOMIC PROBLEM [None]
  - JOINT INJURY [None]
  - KIDNEY INFECTION [None]
  - MUSCLE SPASMS [None]
  - MYALGIA [None]
  - THYROID FUNCTION TEST ABNORMAL [None]
